FAERS Safety Report 23037610 (Version 1)
Quarter: 2023Q4

REPORT INFORMATION
  Report Type: Spontaneous
  Country: US (occurrence: US)
  Receive Date: 20231006
  Receipt Date: 20231006
  Transmission Date: 20240110
  Serious: No
  Sender: FDA-Public Use
  Company Number: US-SA-SAC20231004000219

PATIENT
  Age: 2 Year
  Sex: Male

DRUGS (4)
  1. ELOCTATE [Suspect]
     Active Substance: EFMOROCTOCOG ALFA
     Indication: Factor VIII deficiency
     Dosage: 500 U, PRN (INFUSE 484 UNITS AS NEEDED FOR MILD/MODERATE BLEED)
     Route: 042
  2. ELOCTATE [Suspect]
     Active Substance: EFMOROCTOCOG ALFA
     Indication: Factor VIII deficiency
     Dosage: 500 U, PRN (INFUSE 484 UNITS AS NEEDED FOR MILD/MODERATE BLEED)
     Route: 042
  3. ELOCTATE [Suspect]
     Active Substance: EFMOROCTOCOG ALFA
     Dosage: 750 U, PRN (INFUSE 746 UNITS AS NEEDED FOR SEVERE BLEED)
     Route: 042
  4. ELOCTATE [Suspect]
     Active Substance: EFMOROCTOCOG ALFA
     Dosage: 750 U, PRN (INFUSE 746 UNITS AS NEEDED FOR SEVERE BLEED)
     Route: 042

REACTIONS (1)
  - Radial head dislocation [Recovered/Resolved]

NARRATIVE: CASE EVENT DATE: 20230901
